FAERS Safety Report 14662444 (Version 2)
Quarter: 2018Q2

REPORT INFORMATION
  Report Type: Report from Study
  Country: None (occurrence: ES)
  Receive Date: 20180321
  Receipt Date: 20180403
  Transmission Date: 20180711
  Serious: Yes (Hospitalization)
  Sender: FDA-Public Use
  Company Number: ES-ABBVIE-18K-144-2238534-00

PATIENT
  Age: 71 Year
  Sex: Male

DRUGS (3)
  1. DUODOPA [Suspect]
     Active Substance: CARBIDOPA\LEVODOPA
     Dosage: DOSE DECREASED
     Route: 050
     Dates: start: 201801, end: 2018
  2. DUODOPA [Suspect]
     Active Substance: CARBIDOPA\LEVODOPA
     Indication: PARKINSON^S DISEASE
     Dosage: MORNING DOSE: 14ML CONTINUOUS DOSE: 2.4ML/H EXTRA DOSE: 1.5ML
     Route: 050
     Dates: start: 20160928, end: 201801
  3. DUODOPA [Suspect]
     Active Substance: CARBIDOPA\LEVODOPA
     Dosage: MORNING DOSE: 15.5 ML;,CONTINUOUS DOSE: .7 ML/H, EXTRA DOSE; 1.5 ML
     Route: 050
     Dates: start: 2018, end: 201803

REACTIONS (18)
  - Haematuria [Recovering/Resolving]
  - On and off phenomenon [Recovered/Resolved]
  - Bladder catheterisation [Unknown]
  - Oral disorder [Recovered/Resolved]
  - Gait inability [Unknown]
  - Dysarthria [Recovered/Resolved]
  - Fall [Unknown]
  - On and off phenomenon [Recovered/Resolved]
  - Fall [Recovering/Resolving]
  - Disorientation [Recovering/Resolving]
  - Parkinson^s disease [Unknown]
  - Dysphagia [Not Recovered/Not Resolved]
  - Musculoskeletal stiffness [Unknown]
  - Hallucination [Recovering/Resolving]
  - Disorientation [Recovering/Resolving]
  - Subdural haemorrhage [Recovering/Resolving]
  - Balance disorder [Unknown]
  - Insomnia [Recovering/Resolving]

NARRATIVE: CASE EVENT DATE: 201801
